FAERS Safety Report 7260759-5 (Version None)
Quarter: 2011Q1

REPORT INFORMATION
  Report Type: 
  Country: None (occurrence: None)
  Receive Date: 20110130
  Receipt Date: 20101220
  Transmission Date: 20110831
  Serious: No
  Sender: FDA-Public Use
  Company Number: US-ABBOTT-10P-163-0693522-00

PATIENT
  Sex: Male
  Weight: 62.198 kg

DRUGS (5)
  1. OMEPRAZOLE [Concomitant]
     Indication: GASTROOESOPHAGEAL REFLUX DISEASE
     Route: 048
  2. MULTI-VITAMIN [Concomitant]
     Indication: PRODUCT USED FOR UNKNOWN INDICATION
     Route: 048
  3. CANASA [Concomitant]
     Indication: CROHN'S DISEASE
     Route: 054
  4. HUMIRA [Suspect]
     Indication: CROHN'S DISEASE
     Dosage: LOADING DOSE 2 PENS 1ST DAY AND 2 PENS, LOADING DOSE
     Route: 058
     Dates: start: 20100401
  5. PENTASA [Concomitant]
     Indication: CROHN'S DISEASE
     Dosage: 6 TABS DAILY
     Route: 048

REACTIONS (5)
  - OROPHARYNGEAL PAIN [None]
  - PHARYNGEAL ERYTHEMA [None]
  - THROAT LESION [None]
  - TONSILLAR HYPERTROPHY [None]
  - DYSPHAGIA [None]
